FAERS Safety Report 7724233-1 (Version None)
Quarter: 2011Q3

REPORT INFORMATION
  Report Type: 
  Country: None (occurrence: None)
  Receive Date: 20110901
  Receipt Date: 20110824
  Transmission Date: 20111222
  Serious: Yes (Congenital Anomaly)
  Sender: FDA-Public Use
  Company Number: US-CEPHALON-2011004469

PATIENT

DRUGS (1)
  1. PROVIGIL [Suspect]
     Route: 064

REACTIONS (1)
  - CONGENITAL ANOMALY [None]
